FAERS Safety Report 23853926 (Version 3)
Quarter: 2024Q2

REPORT INFORMATION
  Report Type: Spontaneous
  Country: US (occurrence: US)
  Receive Date: 20240514
  Receipt Date: 20240524
  Transmission Date: 20240715
  Serious: No
  Sender: FDA-Public Use
  Company Number: US-AMGEN-USASP2024095329

PATIENT
  Age: 82 Year
  Sex: Female
  Weight: 71.6 kg

DRUGS (2)
  1. REPATHA [Suspect]
     Active Substance: EVOLOCUMAB
     Indication: Hypercholesterolaemia
     Dosage: UNK
     Route: 065
     Dates: start: 2019
  2. REPATHA [Suspect]
     Active Substance: EVOLOCUMAB
     Dosage: 420 MILLIGRAM, QMO
     Route: 065

REACTIONS (5)
  - Device difficult to use [Unknown]
  - Incorrect dose administered by device [Unknown]
  - Pruritus [Unknown]
  - Pain [Unknown]
  - Erythema [Unknown]

NARRATIVE: CASE EVENT DATE: 20240512
